FAERS Safety Report 19371752 (Version 5)
Quarter: 2021Q4

REPORT INFORMATION
  Report Type: Report from Study
  Country: DE (occurrence: DE)
  Receive Date: 20210604
  Receipt Date: 20211026
  Transmission Date: 20220303
  Serious: Yes (Other)
  Sender: FDA-Public Use
  Company Number: NVSC2021DE050183

PATIENT
  Sex: Male
  Weight: 98 kg

DRUGS (17)
  1. ELTROMBOPAG OLAMINE [Suspect]
     Active Substance: ELTROMBOPAG OLAMINE
     Indication: Immune thrombocytopenia
     Dosage: 50 MG, QD
     Route: 048
     Dates: start: 20210121, end: 20210321
  2. ELTROMBOPAG OLAMINE [Suspect]
     Active Substance: ELTROMBOPAG OLAMINE
     Dosage: 50 MG, QD
     Route: 048
     Dates: start: 20210406, end: 20210504
  3. ELTROMBOPAG OLAMINE [Suspect]
     Active Substance: ELTROMBOPAG OLAMINE
     Dosage: 50 MG (EVERY OTHER DAY)
     Route: 048
     Dates: start: 20210505, end: 20210526
  4. ELTROMBOPAG OLAMINE [Suspect]
     Active Substance: ELTROMBOPAG OLAMINE
     Dosage: 50 MG, QD
     Route: 048
     Dates: start: 20210607
  5. AZACITIDINE [Concomitant]
     Active Substance: AZACITIDINE
     Indication: Myelodysplastic syndrome
     Dosage: 75 MG2 (D1-7 Q28)
     Route: 042
     Dates: start: 20201012
  6. EUTHYROX [Concomitant]
     Active Substance: LEVOTHYROXINE SODIUM
     Indication: Hypothyroidism
     Dosage: 25 UG, Q1D
     Route: 048
  7. CLINDAMYCIN [Concomitant]
     Active Substance: CLINDAMYCIN
     Indication: Prophylaxis
     Dosage: 300 MG, Q1D
     Route: 048
     Dates: start: 20210215
  8. PASPERTIN [Concomitant]
     Indication: Prophylaxis
     Dosage: 10 MG, PRN
     Route: 048
     Dates: start: 20201214
  9. PASPERTIN [Concomitant]
     Dosage: ML/PRN
     Route: 048
     Dates: start: 20210312
  10. PANTOPRAZOLE [Concomitant]
     Active Substance: PANTOPRAZOLE
     Indication: Gastric disorder
     Dosage: 40 MG, PRN
     Route: 048
     Dates: start: 20210312
  11. LEVOFLOXACIN [Concomitant]
     Active Substance: LEVOFLOXACIN
     Indication: Immune thrombocytopenia
     Dosage: 500 MG, Q1D
     Route: 048
     Dates: start: 20210528, end: 20210603
  12. LEVOFLOXACIN [Concomitant]
     Active Substance: LEVOFLOXACIN
     Indication: Antibiotic prophylaxis
     Dosage: 500 MG, Q1D
     Route: 048
     Dates: start: 20210528, end: 20210808
  13. LYRICA [Concomitant]
     Active Substance: PREGABALIN
     Indication: Neuralgia
     Dosage: MG/ PRN
     Route: 048
     Dates: start: 20210111
  14. LYRICA [Concomitant]
     Active Substance: PREGABALIN
     Indication: Trigeminal neuralgia
     Dosage: 150 MG, PRN
     Route: 048
  15. ALLOPURINOL [Concomitant]
     Active Substance: ALLOPURINOL
     Indication: Prophylaxis
     Dosage: 300 MG, QID
     Route: 048
     Dates: start: 20210914
  16. PREDNISOLONE [Concomitant]
     Active Substance: PREDNISOLONE
     Indication: Prophylaxis
     Dosage: 50 MG, Q1D
     Route: 048
     Dates: start: 20210803, end: 20210803
  17. VENETOCLAX [Concomitant]
     Active Substance: VENETOCLAX
     Indication: Acute myelomonocytic leukaemia
     Dosage: UNK (100 MG / Q4W D1-7)
     Route: 042
     Dates: start: 20210909

REACTIONS (9)
  - Eye haemorrhage [Recovered/Resolved]
  - Bone pain [Not Recovered/Not Resolved]
  - Diarrhoea [Not Recovered/Not Resolved]
  - Swelling face [Recovered/Resolved]
  - Hypertension [Recovered/Resolved]
  - Flatulence [Recovered/Resolved]
  - Vomiting [Recovered/Resolved]
  - Nausea [Recovered/Resolved]
  - Insomnia [Recovered/Resolved]

NARRATIVE: CASE EVENT DATE: 20210213
